FAERS Safety Report 16300181 (Version 2)
Quarter: 2019Q3

REPORT INFORMATION
  Report Type: Spontaneous
  Country: US (occurrence: US)
  Receive Date: 20190510
  Receipt Date: 20190705
  Transmission Date: 20191004
  Serious: Yes (Other)
  Sender: FDA-Public Use
  Company Number: US-ASTELLAS-2019US019678

PATIENT
  Sex: Female

DRUGS (1)
  1. MYRBETRIQ [Suspect]
     Active Substance: MIRABEGRON
     Indication: PRODUCT USED FOR UNKNOWN INDICATION
     Dosage: UNK UNK, UNKNOWN FREQ.
     Route: 065
     Dates: end: 20190503

REACTIONS (6)
  - Hand-foot-and-mouth disease [Unknown]
  - Lip swelling [Unknown]
  - Lip blister [Unknown]
  - Gingival swelling [Unknown]
  - Pruritus [Unknown]
  - Speech disorder [Unknown]
